FAERS Safety Report 7653632-1 (Version None)
Quarter: 2011Q3

REPORT INFORMATION
  Report Type: 
  Country: None (occurrence: None)
  Receive Date: 20110803
  Receipt Date: 20110803
  Transmission Date: 20111222
  Serious: Yes (Other)
  Sender: FDA-Public Use
  Company Number: None

PATIENT
  Sex: Female
  Weight: 108.4 kg

DRUGS (1)
  1. LUPRON DEPOT [Suspect]
     Indication: ENDOMETRIOSIS
     Dosage: 11.25MG
     Route: 030
     Dates: start: 20030101, end: 20030630

REACTIONS (31)
  - BACK PAIN [None]
  - HOT FLUSH [None]
  - MIGRAINE [None]
  - FIBROMYALGIA [None]
  - CYSTITIS INTERSTITIAL [None]
  - FATIGUE [None]
  - ARTHRALGIA [None]
  - VAGINITIS BACTERIAL [None]
  - DEPRESSION [None]
  - TOXICITY TO VARIOUS AGENTS [None]
  - DERMATITIS [None]
  - ANXIETY [None]
  - EMOTIONAL DISORDER [None]
  - SELF ESTEEM DECREASED [None]
  - ANHEDONIA [None]
  - IMPAIRED DRIVING ABILITY [None]
  - CHONDROPATHY [None]
  - WEIGHT INCREASED [None]
  - HYPOTHYROIDISM [None]
  - IRRITABLE BOWEL SYNDROME [None]
  - NECK PAIN [None]
  - RESTLESS LEGS SYNDROME [None]
  - VAGINAL INFECTION [None]
  - CONSTIPATION [None]
  - QUALITY OF LIFE DECREASED [None]
  - ASTHENIA [None]
  - HEPATIC STEATOSIS [None]
  - INSOMNIA [None]
  - PAIN [None]
  - INSULIN RESISTANCE [None]
  - MENSTRUATION IRREGULAR [None]
